FAERS Safety Report 15091131 (Version 1)
Quarter: 2018Q2

REPORT INFORMATION
  Report Type: Spontaneous
  Country: US (occurrence: US)
  Receive Date: 20180629
  Receipt Date: 20180629
  Transmission Date: 20180711
  Serious: No
  Sender: FDA-Public Use
  Company Number: US-AMGEN-USASP2014087169

PATIENT
  Age: 47 Year
  Sex: Female

DRUGS (1)
  1. PROLIA [Suspect]
     Active Substance: DENOSUMAB
     Indication: OSTEOPOROSIS
     Dosage: UNK
     Route: 065
     Dates: start: 20141028

REACTIONS (14)
  - Arthralgia [Unknown]
  - Peripheral swelling [Unknown]
  - Pain of skin [Unknown]
  - Asthenia [Recovered/Resolved]
  - Chills [Not Recovered/Not Resolved]
  - Influenza [Not Recovered/Not Resolved]
  - Malaise [Unknown]
  - Accident [Recovered/Resolved]
  - Myalgia [Unknown]
  - Pain in jaw [Unknown]
  - Eye swelling [Unknown]
  - Lethargy [Recovered/Resolved]
  - Mouth swelling [Unknown]
  - Somnolence [Recovered/Resolved]

NARRATIVE: CASE EVENT DATE: 20141029
